FAERS Safety Report 6150211-2 (Version None)
Quarter: 2009Q2

REPORT INFORMATION
  Report Type: 
  Country: None (occurrence: None)
  Receive Date: 20090407
  Receipt Date: 20090406
  Transmission Date: 20091009
  Serious: Yes (Hospitalization)
  Sender: FDA-Public Use
  Company Number: SP02265

PATIENT
  Age: 68 Year
  Sex: Female

DRUGS (2)
  1. MESALAMINE [Suspect]
     Indication: COLITIS ULCERATIVE
     Dosage: 3 MG, ORAL
     Route: 048
     Dates: start: 20060101
  2. CARBAMAZEPINE [Concomitant]

REACTIONS (3)
  - EYE DISORDER [None]
  - OPHTHALMOPLEGIA [None]
  - POLYNEUROPATHY [None]
